FAERS Safety Report 5266403-0 (Version None)
Quarter: 2007Q1

REPORT INFORMATION
  Report Type: 
  Country: None (occurrence: None)
  Receive Date: 20070315
  Receipt Date: 20070201
  Transmission Date: 20070707
  Serious: No
  Sender: FDA-Public Use
  Company Number: US-GLAXOSMITHKLINE-A0635875A

PATIENT
  Age: 71 Year
  Sex: Female

DRUGS (2)
  1. FLOVENT [Suspect]
     Indication: ALLERGIC BRONCHITIS
     Dosage: 1PUFF TWICE PER DAY
     Route: 055
     Dates: start: 20070114, end: 20070115
  2. COUMADIN [Concomitant]

REACTIONS (6)
  - COUGH [None]
  - EAR PAIN [None]
  - HEADACHE [None]
  - HYPERSENSITIVITY [None]
  - PRURITUS [None]
  - SNEEZING [None]
